FAERS Safety Report 14554195 (Version 1)
Quarter: 2018Q1

REPORT INFORMATION
  Report Type: Spontaneous
  Country: GB (occurrence: GB)
  Receive Date: 20180220
  Receipt Date: 20180220
  Transmission Date: 20180509
  Serious: Yes (Other)
  Sender: FDA-Public Use
  Company Number: IE-NOVOPROD-586708

PATIENT
  Sex: Male
  Weight: 2.75 kg

DRUGS (1)
  1. MIXTARD HUMAN 70/30 [Suspect]
     Active Substance: INSULIN HUMAN
     Indication: GESTATIONAL DIABETES
     Dosage: 44 U, QD
     Route: 064

REACTIONS (5)
  - Premature baby [Recovered/Resolved]
  - Gangrene neonatal [Recovered/Resolved]
  - Cardiac murmur [Unknown]
  - Foetal exposure during pregnancy [Recovered/Resolved]
  - Hypoglycaemia neonatal [Recovered/Resolved]
